FAERS Safety Report 6287972-8 (Version None)
Quarter: 2009Q3

REPORT INFORMATION
  Report Type: 
  Country: None (occurrence: None)
  Receive Date: 20090729
  Receipt Date: 20071116
  Transmission Date: 20100115
  Serious: Yes (Other)
  Sender: FDA-Public Use
  Company Number: US-ASTRAZENECA-2007UW16332

PATIENT
  Age: 20509 Day
  Sex: Male
  Weight: 177.6 kg

DRUGS (22)
  1. SEROQUEL [Suspect]
     Indication: SLEEP DISORDER
     Route: 048
     Dates: start: 20011003, end: 20061207
  2. SEROQUEL [Suspect]
     Route: 048
     Dates: start: 20030923
  3. EFFEXOR [Concomitant]
     Dates: start: 19990526
  4. ZONEGRAN [Concomitant]
     Dosage: 100 AT NIGHT
     Dates: start: 20030923
  5. VALIUM [Concomitant]
     Dosage: 10 THREE TIMES A DAY
     Dates: start: 20030923
  6. ATIVAN [Concomitant]
     Indication: DEPRESSION
     Dates: start: 19970217
  7. CORTEF [Concomitant]
     Indication: ADDISON'S DISEASE
     Dates: start: 19760101
  8. DURAGESIC-100 [Concomitant]
     Dates: start: 20070417
  9. FLOMAX [Concomitant]
     Dates: start: 20070417
  10. PRAVACHOL [Concomitant]
     Dosage: 80 AT NIGHT
     Dates: start: 20070417
  11. REGLAN [Concomitant]
     Dates: start: 20070417
  12. SYNTHROID [Concomitant]
     Dates: start: 20070417
  13. TRICOR [Concomitant]
     Dates: start: 20070417
  14. URISED [Concomitant]
     Dates: start: 20070417
  15. ZANAFLEX [Concomitant]
     Dates: start: 20070417
  16. METHOTREXATE [Concomitant]
     Dosage: 2.5 DAILY, 5 PILLS A WEEK
     Dates: start: 20000629
  17. CRESTOR [Concomitant]
     Dates: start: 20070418
  18. PERCOCET [Concomitant]
     Dosage: TWO, THREE TIMES A DAY
     Dates: start: 19990621
  19. CATAPRES [Concomitant]
     Dates: start: 20070822
  20. COUMADIN [Concomitant]
     Indication: DEEP VEIN THROMBOSIS
     Dates: start: 20061102
  21. MUCOMYST [Concomitant]
     Dates: start: 20070822
  22. ROCEPHIN [Concomitant]
     Dates: start: 20070417

REACTIONS (3)
  - DIABETES MELLITUS INADEQUATE CONTROL [None]
  - DIABETIC NEUROPATHY [None]
  - TYPE 2 DIABETES MELLITUS [None]
